FAERS Safety Report 20469933 (Version 1)
Quarter: 2022Q1

REPORT INFORMATION
  Report Type: Spontaneous
  Country: US (occurrence: None)
  Receive Date: 20220213
  Receipt Date: 20220213
  Transmission Date: 20220423
  Serious: Yes (Hospitalization, Disabling, Congenital Anomaly)
  Sender: FDA-Public Use
  Company Number: None

PATIENT
  Age: 35 Year
  Sex: Female

DRUGS (1)
  1. MIRENA [Suspect]
     Active Substance: LEVONORGESTREL

REACTIONS (13)
  - Pregnancy with contraceptive device [None]
  - Vaginal haemorrhage [None]
  - Uterine injury [None]
  - Amenorrhoea [None]
  - Premature baby [None]
  - Maternal drugs affecting foetus [None]
  - Chronic respiratory disease [None]
  - Cerebral palsy [None]
  - Developmental delay [None]
  - Autoimmune disorder [None]
  - Alopecia [None]
  - Infection [None]
  - Vaginal odour [None]

NARRATIVE: CASE EVENT DATE: 20171031
